FAERS Safety Report 13024275 (Version 1)
Quarter: 2016Q4

REPORT INFORMATION
  Report Type: Spontaneous
  Country: PL (occurrence: PL)
  Receive Date: 20161213
  Receipt Date: 20161213
  Transmission Date: 20170207
  Serious: Yes (Life-Threatening, Other)
  Sender: FDA-Public Use
  Company Number: PL-ASTRAZENECA-2016SF29546

PATIENT
  Sex: Female

DRUGS (12)
  1. AMPICILIN [Concomitant]
     Active Substance: AMPICILLIN
     Indication: NECROTISING COLITIS
  2. METRONIDAZOLE. [Concomitant]
     Active Substance: METRONIDAZOLE
     Indication: SEPSIS
  3. METRONIDAZOLE. [Concomitant]
     Active Substance: METRONIDAZOLE
     Indication: NECROTISING COLITIS
  4. MEROPENEM. [Suspect]
     Active Substance: MEROPENEM
     Indication: NECROTISING COLITIS
     Route: 042
  5. TAZOBACTAM [Concomitant]
     Active Substance: TAZOBACTAM
     Indication: SEPSIS
  6. MEROPENEM. [Suspect]
     Active Substance: MEROPENEM
     Indication: SEPSIS
     Route: 042
  7. AMPICILIN [Concomitant]
     Active Substance: AMPICILLIN
     Indication: SEPSIS
  8. FLUCONAZOLE. [Concomitant]
     Active Substance: FLUCONAZOLE
     Indication: SEPSIS
  9. TAZOBACTAM [Concomitant]
     Active Substance: TAZOBACTAM
     Indication: NECROTISING COLITIS
  10. GENTAMICIN. [Concomitant]
     Active Substance: GENTAMICIN
     Indication: NECROTISING COLITIS
  11. GENTAMICIN. [Concomitant]
     Active Substance: GENTAMICIN
     Indication: SEPSIS
  12. FLUCONAZOLE. [Concomitant]
     Active Substance: FLUCONAZOLE
     Indication: NECROTISING COLITIS

REACTIONS (2)
  - Candida infection [Unknown]
  - Meningitis candida [Unknown]
